FAERS Safety Report 5526294-7 (Version None)
Quarter: 2007Q4

REPORT INFORMATION
  Report Type: 
  Country: None (occurrence: None)
  Receive Date: 20071121
  Receipt Date: 20071121
  Transmission Date: 20080405
  Serious: Yes (Hospitalization)
  Sender: FDA-Public Use
  Company Number: None

PATIENT
  Sex: Female
  Weight: 90.71 kg

DRUGS (13)
  1. CARBOPLATIN [Suspect]
     Dosage: 710 MG
     Dates: end: 20071114
  2. TAXOTERE [Suspect]
     Dosage: 159 MG
     Dates: end: 20071114
  3. CARTA XT [Concomitant]
  4. COMPAZINE [Concomitant]
  5. DEXAMETHASONE [Concomitant]
  6. FENTANYL TRANSDERMAL SYSTEM [Concomitant]
  7. LISINOPRIL [Concomitant]
  8. NORCO [Concomitant]
  9. PRILOSEC [Concomitant]
  10. TRICOR [Concomitant]
  11. TYLENOL EX-STR [Concomitant]
  12. ZOFRAN [Concomitant]
  13. SYNTHROID [Concomitant]

REACTIONS (11)
  - ATRIAL FIBRILLATION [None]
  - BALANCE DISORDER [None]
  - BLOOD PRESSURE SYSTOLIC DECREASED [None]
  - CONDITION AGGRAVATED [None]
  - FIBRIN D DIMER INCREASED [None]
  - HYPOVOLAEMIA [None]
  - MALAISE [None]
  - PALPITATIONS [None]
  - PRESYNCOPE [None]
  - SINUS TACHYCARDIA [None]
  - SUPRAVENTRICULAR TACHYCARDIA [None]
